FAERS Safety Report 16785569 (Version 1)
Quarter: 2019Q3

REPORT INFORMATION
  Report Type: Report from Study
  Country: AU (occurrence: AU)
  Receive Date: 20190909
  Receipt Date: 20190909
  Transmission Date: 20191005
  Serious: Yes (Life-Threatening)
  Sender: FDA-Public Use
  Company Number: AU-RECRO GAINESVILLE LLC-REPH-2019-000174

PATIENT
  Age: 54 Year
  Sex: Male

DRUGS (2)
  1. METOPROLOL. [Suspect]
     Active Substance: METOPROLOL
     Indication: ANGINA PECTORIS
     Dosage: 100 MILLIGRAM, BID
     Route: 065
  2. VERAPAMIL HYDROCHLORIDE SUSTAINED RELEASE [Suspect]
     Active Substance: VERAPAMIL HYDROCHLORIDE
     Indication: ANGINA PECTORIS
     Dosage: 120 MILLIGRAM, Q8H
     Route: 048

REACTIONS (3)
  - Drug interaction [Recovered/Resolved]
  - Left ventricular failure [Recovered/Resolved]
  - Off label use [Recovered/Resolved]
